FAERS Safety Report 19264484 (Version 1)
Quarter: 2021Q2

REPORT INFORMATION
  Report Type: Spontaneous
  Country: US (occurrence: US)
  Receive Date: 20210513
  Receipt Date: 20210513
  Transmission Date: 20210717
  Serious: Yes (Life-Threatening, Hospitalization, Disabling, Other)
  Sender: FDA-Public Use
  Company Number: None

PATIENT
  Age: 17 Year
  Sex: Female
  Weight: 113.4 kg

DRUGS (4)
  1. SKYLA [Concomitant]
     Active Substance: LEVONORGESTREL
  2. NEXPLANON [Suspect]
     Active Substance: ETONOGESTREL
  3. BUPROPION. [Concomitant]
     Active Substance: BUPROPION
  4. HYDROXYZINE [Concomitant]
     Active Substance: HYDROXYZINE HYDROCHLORIDE

REACTIONS (6)
  - Migraine [None]
  - Strabismus [None]
  - Vision blurred [None]
  - Educational problem [None]
  - Idiopathic intracranial hypertension [None]
  - Headache [None]

NARRATIVE: CASE EVENT DATE: 20140201
